FAERS Safety Report 21654572 (Version 2)
Quarter: 2022Q4

REPORT INFORMATION
  Report Type: Spontaneous
  Country: MX (occurrence: MX)
  Receive Date: 20221129
  Receipt Date: 20221219
  Transmission Date: 20230112
  Serious: No
  Sender: FDA-Public Use
  Company Number: MX-NOVOPROD-982623

PATIENT
  Age: 35 Year
  Sex: Male

DRUGS (1)
  1. NOVOEIGHT [Suspect]
     Active Substance: ANTIHEMOPHILIC FACTOR, HUMAN RECOMBINANT
     Indication: Product used for unknown indication
     Dosage: UNK

REACTIONS (4)
  - Swelling [Unknown]
  - Haemorrhage [Unknown]
  - Product dispensing error [Unknown]
  - Incorrect dose administered [Unknown]
